FAERS Safety Report 21391456 (Version 1)
Quarter: 2022Q3

REPORT INFORMATION
  Report Type: Spontaneous
  Country: CA (occurrence: None)
  Receive Date: 20220929
  Receipt Date: 20220929
  Transmission Date: 20221027
  Serious: Yes (Hospitalization)
  Sender: FDA-Public Use
  Company Number: 2022A326717

PATIENT
  Age: 63 Year
  Sex: Female

DRUGS (2)
  1. ROSUVASTATIN CALCIUM [Suspect]
     Active Substance: ROSUVASTATIN CALCIUM
     Indication: Hypercholesterolaemia
     Route: 065
  2. TALTZ [Suspect]
     Active Substance: IXEKIZUMAB
     Indication: Psoriasis
     Route: 058

REACTIONS (9)
  - Bladder cancer [Unknown]
  - Cystitis [Unknown]
  - Diabetes mellitus [Unknown]
  - Furuncle [Unknown]
  - Haemorrhage [Unknown]
  - Injection site pain [Unknown]
  - Peripheral swelling [Unknown]
  - Nausea [Unknown]
  - Blood glucose increased [Unknown]
